FAERS Safety Report 18683380 (Version 1)
Quarter: 2020Q4

REPORT INFORMATION
  Report Type: Spontaneous
  Country: AF (occurrence: AF)
  Receive Date: 20201230
  Receipt Date: 20201230
  Transmission Date: 20210114
  Serious: Yes (Hospitalization)
  Sender: FDA-Public Use
  Company Number: None

PATIENT
  Age: 72 Year
  Weight: 75.6 kg

DRUGS (1)
  1. BAMLANIVIMAB. [Suspect]
     Active Substance: BAMLANIVIMAB
     Indication: COVID-19
     Dosage: ?          OTHER FREQUENCY:ONCE;?
     Route: 041
     Dates: start: 20201224

REACTIONS (7)
  - Haematuria [None]
  - Pneumonia [None]
  - Pyuria [None]
  - Pollakiuria [None]
  - Acute respiratory failure [None]
  - Serum ferritin abnormal [None]
  - Dysuria [None]

NARRATIVE: CASE EVENT DATE: 20201224
